FAERS Safety Report 14715730 (Version 1)
Quarter: 2018Q2

REPORT INFORMATION
  Report Type: Report from Study
  Country: US (occurrence: US)
  Receive Date: 20180404
  Receipt Date: 20180404
  Transmission Date: 20180711
  Serious: Yes (Hospitalization)
  Sender: FDA-Public Use
  Company Number: US-ACTELION-A-US2018-170134

PATIENT
  Age: 58 Year
  Sex: Female

DRUGS (8)
  1. REMODULIN [Concomitant]
     Active Substance: TREPROSTINIL
  2. VITAMIN D [Concomitant]
     Active Substance: CHOLECALCIFEROL
  3. OMEPRAZOLE. [Concomitant]
     Active Substance: OMEPRAZOLE
  4. TRACLEER [Suspect]
     Active Substance: BOSENTAN
     Indication: PULMONARY HYPERTENSION
     Dosage: 125 MG, BID
     Route: 048
     Dates: start: 20171031
  5. IMPACT [Concomitant]
  6. ADEMPAS [Concomitant]
     Active Substance: RIOCIGUAT
  7. HYDROXYCHLOROQUINE [Concomitant]
     Active Substance: HYDROXYCHLOROQUINE
  8. WARFARIN [Concomitant]
     Active Substance: WARFARIN

REACTIONS (1)
  - Lung transplant [Unknown]
